FAERS Safety Report 12466053 (Version 3)
Quarter: 2016Q2

REPORT INFORMATION
  Report Type: Report from Study
  Country: SE (occurrence: SE)
  Receive Date: 20160614
  Receipt Date: 20160627
  Transmission Date: 20160815
  Serious: Yes (Hospitalization)
  Sender: FDA-Public Use
  Company Number: SE-ABBVIE-16P-150-1649595-00

PATIENT
  Age: 51 Year
  Sex: Male

DRUGS (7)
  1. MIRTAZAPINE. [Concomitant]
     Active Substance: MIRTAZAPINE
     Indication: ANXIOLYTIC THERAPY
     Dosage: AT BEDTIME
  2. PANODIL [Concomitant]
     Active Substance: ACETAMINOPHEN
     Indication: PRODUCT USED FOR UNKNOWN INDICATION
  3. DUODOPA [Suspect]
     Active Substance: CARBIDOPA\LEVODOPA
     Indication: PARKINSON^S DISEASE
     Route: 050
     Dates: start: 20160530, end: 20160602
  4. FOLACIN [Concomitant]
     Active Substance: FOLIC ACID
     Indication: PRODUCT USED FOR UNKNOWN INDICATION
  5. LEVOCAR [Concomitant]
     Indication: PARKINSON^S DISEASE
     Dosage: AT BEDTIME
  6. ALVEDON [Concomitant]
     Active Substance: ACETAMINOPHEN
     Indication: PRODUCT USED FOR UNKNOWN INDICATION
     Dates: start: 20160602
  7. DUODOPA [Suspect]
     Active Substance: CARBIDOPA\LEVODOPA
     Dosage: MORNING DOSE 10 ML, CONTINUOUS DOSE 3.9 ML/H, EXTRA DOSE 1.0 M
     Route: 050
     Dates: start: 20160602

REACTIONS (8)
  - C-reactive protein increased [Recovering/Resolving]
  - Abdominal pain [Not Recovered/Not Resolved]
  - Red blood cell sedimentation rate increased [Recovering/Resolving]
  - Body temperature increased [Unknown]
  - Drug ineffective [Not Recovered/Not Resolved]
  - Stoma site infection [Recovering/Resolving]
  - White blood cell count increased [Unknown]
  - Parkinson^s disease [Not Recovered/Not Resolved]

NARRATIVE: CASE EVENT DATE: 20160607
